FAERS Safety Report 21776789 (Version 2)
Quarter: 2024Q3

REPORT INFORMATION
  Report Type: Spontaneous
  Country: US (occurrence: US)
  Receive Date: 20221226
  Receipt Date: 20240729
  Transmission Date: 20241017
  Serious: No
  Sender: AMGEN
  Company Number: US-AMGEN-USASP2022220789

PATIENT
  Age: 23 Year
  Sex: Male

DRUGS (7)
  1. OTEZLA [Suspect]
     Active Substance: APREMILAST
     Indication: Psoriasis
     Dosage: 30 MILLIGRAM, BID
     Route: 048
     Dates: start: 20220408
  2. ALCLOMETASONA [Concomitant]
     Dosage: UNK
  3. TACROLIMUS [Concomitant]
     Active Substance: TACROLIMUS
     Dosage: UNK
  4. FLULAVAL QUADRIVALENT [Concomitant]
     Dosage: UNK
     Dates: start: 2022
  5. PIMECROLIMUS [Concomitant]
     Active Substance: PIMECROLIMUS
     Dosage: UNK
  6. VTAMA [Concomitant]
     Active Substance: TAPINAROF
     Dosage: UNK
  7. ZORYVE [Concomitant]
     Active Substance: ROFLUMILAST
     Dosage: UNK

REACTIONS (7)
  - Psoriasis [Unknown]
  - Infection [Unknown]
  - Fatigue [Unknown]
  - Upper respiratory tract infection [Unknown]
  - Nasal congestion [Unknown]
  - Product dose omission issue [Unknown]
  - Sleep disorder [Unknown]

NARRATIVE: CASE EVENT DATE: 20220101
